FAERS Safety Report 16040191 (Version 1)
Quarter: 2019Q1

REPORT INFORMATION
  Report Type: Report from Study
  Country: IN (occurrence: IN)
  Receive Date: 20190306
  Receipt Date: 20190306
  Transmission Date: 20190418
  Serious: Yes (Other)
  Sender: FDA-Public Use
  Company Number: IN-ASTELLAS-2018US048869

PATIENT
  Age: 60 Year
  Sex: Male

DRUGS (1)
  1. ENZALUTAMIDE [Suspect]
     Active Substance: ENZALUTAMIDE
     Indication: HORMONE-REFRACTORY PROSTATE CANCER
     Route: 048
     Dates: start: 20170826, end: 2019

REACTIONS (3)
  - Prostatic specific antigen abnormal [Unknown]
  - Intervertebral disc protrusion [Unknown]
  - Malignant neoplasm progression [Unknown]
